FAERS Safety Report 8068393-4 (Version None)
Quarter: 2012Q1

REPORT INFORMATION
  Report Type: 
  Country: None (occurrence: None)
  Receive Date: 20120124
  Receipt Date: 20111021
  Transmission Date: 20120608
  Serious: No
  Sender: FDA-Public Use
  Company Number: US-AMGEN-USASP2011054562

PATIENT
  Sex: Female

DRUGS (7)
  1. XGEVA [Suspect]
     Indication: METASTASES TO BONE
     Dosage: UNK UNK, Q4WK
     Dates: start: 20111010
  2. NAPROXEN (ALEVE) [Concomitant]
  3. LORTAB [Concomitant]
  4. ACETAMINOPHEN [Concomitant]
  5. MOBIC [Concomitant]
  6. PEPCID AC [Concomitant]
  7. LUNESTA [Concomitant]

REACTIONS (1)
  - NAUSEA [None]
